FAERS Safety Report 9544095 (Version 2)
Quarter: 2014Q1

REPORT INFORMATION
  Report Type: Spontaneous
  Country: US (occurrence: None)
  Receive Date: 20130524
  Receipt Date: 20130724
  Transmission Date: 20141002
  Serious: No
  Sender: FDA-Public Use
  Company Number: PHEH2013US004174

PATIENT
  Age: 33 Year
  Sex: Female
  Weight: 62.6 kg

DRUGS (7)
  1. GILENYA (FINGOLIMOD) CAPSULE, 0.5MG [Suspect]
     Indication: MULTIPLE SCLEROSIS
     Route: 048
     Dates: start: 20120216, end: 20130222
  2. CYCLOBENZAPRINE [Concomitant]
  3. CYCLOBENZAPRINE [Concomitant]
  4. BEYAZ (CALCIUM LEVOMEFOLATE, DROSPIRENOE, ETHINYLESTRADIOL BETADEX CLATHRATE) [Concomitant]
  5. MECLIZINE [Concomitant]
  6. CYMBALTA (DULOXETINE HYDROCHLORIDE) [Concomitant]
  7. ATIVAN (LORAZEPAM) [Concomitant]

REACTIONS (9)
  - Fatigue [None]
  - Abdominal pain upper [None]
  - Asthenia [None]
  - Headache [None]
  - Arthralgia [None]
  - Pain [None]
  - Nausea [None]
  - Abdominal pain [None]
  - Dizziness [None]
